FAERS Safety Report 5755226-1 (Version None)
Quarter: 2008Q2

REPORT INFORMATION
  Report Type: 
  Country: None (occurrence: None)
  Receive Date: 20080529
  Receipt Date: 20080529
  Transmission Date: 20081010
  Serious: No
  Sender: FDA-Public Use
  Company Number: None

PATIENT
  Sex: Female
  Weight: 47.8 kg

DRUGS (2)
  1. CAPECITABINE 150 MG [Suspect]
     Indication: OESOPHAGEAL CARCINOMA
     Dosage: 950 MG M-F QD X 28 DAYS PO
     Route: 048
     Dates: start: 20061220, end: 20070206
  2. CAPECITABINE 500 MG [Suspect]
     Indication: OESOPHAGEAL CARCINOMA

REACTIONS (9)
  - ANASTOMOTIC LEAK [None]
  - JEJUNOSTOMY [None]
  - LOCALISED INTRAABDOMINAL FLUID COLLECTION [None]
  - OESOPHAGECTOMY [None]
  - POST PROCEDURAL COMPLICATION [None]
  - PULMONARY EMBOLISM [None]
  - PYLOROPLASTY [None]
  - SPLENECTOMY [None]
  - UNEVALUABLE EVENT [None]
